FAERS Safety Report 6304082-1 (Version None)
Quarter: 2009Q3

REPORT INFORMATION
  Report Type: 
  Country: None (occurrence: None)
  Receive Date: 20090810
  Receipt Date: 20090810
  Transmission Date: 20100115
  Serious: Yes (Other)
  Sender: FDA-Public Use
  Company Number: None

PATIENT
  Age: 69 Year
  Sex: Female
  Weight: 72.5755 kg

DRUGS (2)
  1. LEVAQUIN [Suspect]
     Indication: PLEURISY
     Dosage: 1 TABLET DAILY FOR 10 DAYS PO
     Route: 048
     Dates: start: 20090730, end: 20090804
  2. LEVAQUIN [Suspect]
     Indication: PNEUMONIA
     Dosage: 1 TABLET DAILY FOR 10 DAYS PO
     Route: 048
     Dates: start: 20090730, end: 20090804

REACTIONS (1)
  - TENDONITIS [None]
